FAERS Safety Report 7964135-9 (Version None)
Quarter: 2011Q4

REPORT INFORMATION
  Report Type: 
  Country: None (occurrence: None)
  Receive Date: 20111205
  Receipt Date: 20111116
  Transmission Date: 20120403
  Serious: Yes (Hospitalization)
  Sender: FDA-Public Use
  Company Number: 2011AP002778

PATIENT
  Age: 59 Year
  Sex: Female

DRUGS (2)
  1. AZITHROMYCIN [Suspect]
     Indication: BACTERAEMIA
  2. CORTICOSTEROIDS (CORTICOSTEROIDS) [Concomitant]

REACTIONS (13)
  - POOR VENOUS ACCESS [None]
  - PYREXIA [None]
  - CHILLS [None]
  - PATHOGEN RESISTANCE [None]
  - ANTIBIOTIC RESISTANT STAPHYLOCOCCUS TEST POSITIVE [None]
  - THROMBOSIS IN DEVICE [None]
  - CORYNEBACTERIUM TEST POSITIVE [None]
  - STEVENS-JOHNSON SYNDROME [None]
  - IMMOBILE [None]
  - PSEUDOMONAS TEST POSITIVE [None]
  - DERMATITIS EXFOLIATIVE [None]
  - INCORRECT DOSE ADMINISTERED [None]
  - ACINETOBACTER TEST POSITIVE [None]
